FAERS Safety Report 7864833-1 (Version None)
Quarter: 2011Q4

REPORT INFORMATION
  Report Type: 
  Country: None (occurrence: None)
  Receive Date: 20111028
  Receipt Date: 20100901
  Transmission Date: 20120403
  Serious: No
  Sender: FDA-Public Use
  Company Number: US-GLAXOSMITHKLINE-A0878922A

PATIENT
  Age: 78 Year
  Sex: Male

DRUGS (9)
  1. PLAVIX [Concomitant]
  2. LORATADINE [Concomitant]
  3. PRILOSEC [Concomitant]
  4. ADVAIR DISKUS 100/50 [Suspect]
     Indication: CHRONIC OBSTRUCTIVE PULMONARY DISEASE
     Dosage: 1PUFF TWICE PER DAY
     Route: 055
     Dates: start: 20100715
  5. METOPROLOL TARTRATE [Concomitant]
  6. ASPIRIN [Concomitant]
  7. LEXAPRO [Concomitant]
  8. ETODOLAC [Concomitant]
  9. FISH OIL [Concomitant]

REACTIONS (2)
  - HYPERSOMNIA [None]
  - DRUG INEFFECTIVE [None]
